FAERS Safety Report 13036815 (Version 5)
Quarter: 2017Q1

REPORT INFORMATION
  Report Type: Spontaneous
  Country: US (occurrence: US)
  Receive Date: 20161216
  Receipt Date: 20170215
  Transmission Date: 20170428
  Serious: Yes (Hospitalization)
  Sender: FDA-Public Use
  Company Number: US-ACTELION-A-US2016-147060

PATIENT
  Age: 3 Month
  Sex: Male

DRUGS (5)
  1. TRACLEER [Suspect]
     Active Substance: BOSENTAN
     Indication: PULMONARY ARTERIAL HYPERTENSION
     Dosage: 10 MG, BID
     Route: 048
     Dates: start: 20161011
  2. FUROSEMIDE. [Concomitant]
     Active Substance: FUROSEMIDE
     Dosage: 0.7 ML, BID
  3. SILDENAFIL. [Concomitant]
     Active Substance: SILDENAFIL
     Dosage: 4 MG, QID
  4. MVI [Concomitant]
     Active Substance: VITAMINS
     Dosage: 0.5 ML, QD
     Route: 048
  5. RANITIDINE. [Concomitant]
     Active Substance: RANITIDINE
     Dosage: 0.5 ML, BID

REACTIONS (4)
  - Product use issue [Unknown]
  - Pulmonary vein stenosis [Not Recovered/Not Resolved]
  - No adverse event [Unknown]
  - Pulmonary hypertension [Recovering/Resolving]
